FAERS Safety Report 11410958 (Version 2)
Quarter: 2015Q3

REPORT INFORMATION
  Report Type: Spontaneous
  Country: US (occurrence: US)
  Receive Date: 20150821
  Receipt Date: 20150903
  Transmission Date: 20151125
  Serious: No
  Sender: FDA-Public Use
  Company Number: US-ELI_LILLY_AND_COMPANY-US201005006395

PATIENT
  Sex: Male

DRUGS (6)
  1. LANTUS [Concomitant]
     Active Substance: INSULIN GLARGINE
  2. HUMULIN N [Suspect]
     Active Substance: INSULIN HUMAN
     Dosage: UNK, AS NEEDED
  3. HUMALOG [Suspect]
     Active Substance: INSULIN LISPRO
     Dosage: UNK, AS NEEDED
  4. HUMULIN N [Suspect]
     Active Substance: INSULIN HUMAN
     Dosage: UNK, AS NEEDED
  5. HUMULIN N [Suspect]
     Active Substance: INSULIN HUMAN
     Dosage: 3 U, OTHER
  6. HUMALOG [Suspect]
     Active Substance: INSULIN LISPRO
     Dosage: UNK, AS NEEDED

REACTIONS (3)
  - Blood glucose increased [Unknown]
  - Liver disorder [Unknown]
  - Visual acuity reduced [Unknown]
